FAERS Safety Report 4908284-8 (Version None)
Quarter: 2006Q1

REPORT INFORMATION
  Report Type: 
  Country: None (occurrence: None)
  Receive Date: 20060210
  Receipt Date: 20060131
  Transmission Date: 20060701
  Serious: Yes (Hospitalization, Other)
  Sender: FDA-Public Use
  Company Number: DE-JNJFOC-20051105169

PATIENT
  Sex: Male
  Weight: 110 kg

DRUGS (2)
  1. TOPIRAMATE [Suspect]
     Indication: MIGRAINE PROPHYLAXIS
     Route: 048
  2. CIPRALEX [Concomitant]
     Indication: ANTIDEPRESSANT THERAPY
     Route: 065

REACTIONS (1)
  - HYPERTENSION [None]
